FAERS Safety Report 5726047-0 (Version None)
Quarter: 2008Q2

REPORT INFORMATION
  Report Type: 
  Country: None (occurrence: None)
  Receive Date: 20080502
  Receipt Date: 20080422
  Transmission Date: 20081010
  Serious: Yes (Hospitalization)
  Sender: FDA-Public Use
  Company Number: US-AMGEN-QUU275928

PATIENT
  Sex: Female

DRUGS (1)
  1. ENBREL [Suspect]
     Indication: RHEUMATOID ARTHRITIS
     Route: 058
     Dates: start: 19981101

REACTIONS (5)
  - INJECTION SITE IRRITATION [None]
  - LOSS OF CONSCIOUSNESS [None]
  - PNEUMONIA [None]
  - SEPSIS [None]
  - URINARY TRACT INFECTION [None]
